FAERS Safety Report 10311971 (Version 1)
Quarter: 2014Q3

REPORT INFORMATION
  Report Type: Spontaneous
  Country: RU (occurrence: RU)
  Receive Date: 20140717
  Receipt Date: 20140717
  Transmission Date: 20150326
  Serious: Yes (Other)
  Sender: FDA-Public Use
  Company Number: RU-ENDO PHARMACEUTICALS INC.-AVEE20140131

PATIENT
  Sex: Male

DRUGS (1)
  1. AVEED [Suspect]
     Active Substance: TESTOSTERONE UNDECANOATE
     Indication: HYPOGONADISM
     Dosage: UNKNOWN
     Route: 030

REACTIONS (1)
  - Lung neoplasm malignant [Unknown]
